FAERS Safety Report 8458244 (Version 2)
Quarter: 2012Q4

REPORT INFORMATION
  Report Type: Report from Study
  Country: IN (occurrence: IN)
  Receive Date: 20120314
  Receipt Date: 20120913
  Transmission Date: 20130627
  Serious: Yes (Death, Hospitalization)
  Sender: FDA-Public Use
  Company Number: IN-SANOFI-AVENTIS-2012SA016305

PATIENT
  Age: 56 Year
  Sex: Male
  Weight: 58 kg

DRUGS (6)
  1. DOCETAXEL [Suspect]
     Indication: NON-SMALL CELL LUNG CANCER STAGE IV
     Route: 041
     Dates: start: 20120206, end: 20120206
  2. BLINDED STUDY MEDICATION [Suspect]
     Indication: NON-SMALL CELL LUNG CANCER STAGE IV
     Route: 042
     Dates: start: 20120206, end: 20120206
  3. TRAMADOL [Concomitant]
     Indication: PAIN
     Dates: start: 20120127
  4. RANITIDINE [Concomitant]
     Dates: start: 20120206, end: 20120206
  5. GRANISETRON [Concomitant]
     Dates: start: 20120206, end: 20120206
  6. DEXAMETHASONE [Concomitant]
     Indication: PROPHYLAXIS
     Dates: start: 20120205, end: 20120207

REACTIONS (5)
  - Septic shock [Fatal]
  - Interstitial lung disease [Not Recovered/Not Resolved]
  - Pleural effusion [None]
  - Pericardial effusion [None]
  - Pulmonary mass [None]
